FAERS Safety Report 14121897 (Version 2)
Quarter: 2021Q3

REPORT INFORMATION
  Report Type: Report from Study
  Country: US (occurrence: US)
  Receive Date: 20171024
  Receipt Date: 20210719
  Transmission Date: 20211014
  Serious: No
  Sender: FDA-Public Use
  Company Number: PHHY2017US152585

PATIENT
  Sex: Female

DRUGS (3)
  1. SYSTANE ULTRA [Suspect]
     Active Substance: POLYETHYLENE GLYCOL 400\PROPYLENE GLYCOL
     Indication: PRODUCT USED FOR UNKNOWN INDICATION
     Route: 047
  2. SYSTANE (HYPROMELLOSE 2910 (4000 MPA.S)) [Suspect]
     Active Substance: HYPROMELLOSE 2910 (4000 MPA.S)
     Indication: PRODUCT USED FOR UNKNOWN INDICATION
     Dosage: UNK
     Route: 065
  3. SYSTANE NIGHTTIME [Suspect]
     Active Substance: MINERAL OIL\PETROLATUM
     Indication: PRODUCT USED FOR UNKNOWN INDICATION
     Route: 047

REACTIONS (1)
  - Hypoacusis [Unknown]
